FAERS Safety Report 6261159-7 (Version None)
Quarter: 2009Q3

REPORT INFORMATION
  Report Type: 
  Country: None (occurrence: None)
  Receive Date: 20090709
  Receipt Date: 20080606
  Transmission Date: 20100115
  Serious: No
  Sender: FDA-Public Use
  Company Number: US-KINGPHARMUSA00001-K200800659

PATIENT
  Age: 39 Year
  Sex: Female
  Weight: 52.154 kg

DRUGS (3)
  1. LEVOXYL [Suspect]
     Indication: HYPOTHYROIDISM
     Dosage: 75 MCG, QD
     Route: 048
  2. LEVOXYL [Suspect]
     Dosage: 75 MCG, QD
     Route: 048
  3. VITAMIN A [Concomitant]
     Dosage: UNK, UNK

REACTIONS (2)
  - ANXIETY [None]
  - DYSPEPSIA [None]
